FAERS Safety Report 4700411-0 (Version None)
Quarter: 2005Q2

REPORT INFORMATION
  Report Type: 
  Country: None (occurrence: None)
  Receive Date: 20050627
  Receipt Date: 20050216
  Transmission Date: 20051028
  Serious: Yes (Other)
  Sender: FDA-Public Use
  Company Number: JP-ROCHE-396333

PATIENT
  Age: 5 Year
  Sex: Female

DRUGS (4)
  1. TAMIFLU [Suspect]
     Indication: INFLUENZA
     Route: 048
     Dates: start: 20050211, end: 20050214
  2. FLOMAX [Concomitant]
     Route: 048
     Dates: start: 20050211, end: 20050214
  3. MUCODYNE [Concomitant]
     Route: 048
     Dates: start: 20050211, end: 20050214
  4. CALONAL [Concomitant]
     Route: 048
     Dates: start: 20050211, end: 20050214

REACTIONS (2)
  - DIZZINESS [None]
  - HALLUCINATION [None]
